FAERS Safety Report 5821601-X (Version None)
Quarter: 2008Q3

REPORT INFORMATION
  Report Type: 
  Country: None (occurrence: None)
  Receive Date: 20080724
  Receipt Date: 20080721
  Transmission Date: 20090109
  Serious: Yes (Hospitalization, Other)
  Sender: FDA-Public Use
  Company Number: FR-BRISTOL-MYERS SQUIBB COMPANY-14271084

PATIENT
  Age: 74 Year
  Sex: Female

DRUGS (6)
  1. REYATAZ [Suspect]
     Indication: ANTIRETROVIRAL THERAPY
     Dates: start: 20061001, end: 20071029
  2. NORVIR [Suspect]
     Indication: ANTIRETROVIRAL THERAPY
     Dates: start: 20061001, end: 20071029
  3. TRUVADA [Suspect]
     Indication: ANTIRETROVIRAL THERAPY
     Dosage: 1 DOSAGE FORM = 200/245 MG
     Dates: start: 20061001, end: 20071029
  4. IRBESARTAN [Concomitant]
     Dates: start: 20040101, end: 20070101
  5. PROTELOS [Concomitant]
     Indication: OSTEOPOROSIS
     Dates: start: 20060101
  6. ACTONEL [Concomitant]

REACTIONS (1)
  - CYTOLYTIC HEPATITIS [None]
